FAERS Safety Report 12957722 (Version 1)
Quarter: 2016Q4

REPORT INFORMATION
  Report Type: Spontaneous
  Country: FR (occurrence: FR)
  Receive Date: 20161118
  Receipt Date: 20161118
  Transmission Date: 20170207
  Serious: Yes (Hospitalization, Other)
  Sender: FDA-Public Use
  Company Number: FR-BRISTOL-MYERS SQUIBB COMPANY-BMS-2016-097465

PATIENT
  Age: 68 Year
  Sex: Male

DRUGS (11)
  1. OPDIVO [Suspect]
     Active Substance: NIVOLUMAB
     Indication: PRODUCT USED FOR UNKNOWN INDICATION
     Dosage: 186 MG, UNK
     Route: 042
     Dates: start: 20160701
  2. OPDIVO [Suspect]
     Active Substance: NIVOLUMAB
     Indication: PRODUCT USED FOR UNKNOWN INDICATION
     Dosage: 177 MG, UNK
     Route: 042
     Dates: start: 20160923
  3. OPDIVO [Suspect]
     Active Substance: NIVOLUMAB
     Indication: PRODUCT USED FOR UNKNOWN INDICATION
     Dosage: 186 MG, UNK
     Route: 042
     Dates: start: 20160617
  4. OPDIVO [Suspect]
     Active Substance: NIVOLUMAB
     Indication: PRODUCT USED FOR UNKNOWN INDICATION
     Dosage: 186 MG, UNK
     Route: 042
     Dates: start: 20160909
  5. OPDIVO [Suspect]
     Active Substance: NIVOLUMAB
     Indication: PRODUCT USED FOR UNKNOWN INDICATION
     Dosage: 177 MG, UNK
     Route: 042
     Dates: start: 20161007
  6. DEXERYL                            /00557601/ [Concomitant]
     Active Substance: GLYCERIN\PARAFFIN
     Indication: ADVERSE EVENT
     Route: 065
  7. OPDIVO [Suspect]
     Active Substance: NIVOLUMAB
     Indication: PRODUCT USED FOR UNKNOWN INDICATION
     Dosage: 186 MG, UNK
     Route: 042
     Dates: start: 20160603
  8. OPDIVO [Suspect]
     Active Substance: NIVOLUMAB
     Indication: PRODUCT USED FOR UNKNOWN INDICATION
     Dosage: 186 MG, UNK
     Route: 042
     Dates: start: 20160817
  9. OPDIVO [Suspect]
     Active Substance: NIVOLUMAB
     Indication: PRODUCT USED FOR UNKNOWN INDICATION
     Dosage: 186 MG, UNK
     Route: 042
     Dates: start: 20160729
  10. OPDIVO [Suspect]
     Active Substance: NIVOLUMAB
     Indication: LUNG NEOPLASM MALIGNANT
     Dosage: 186 MG, UNK
     Route: 042
     Dates: start: 20160520
  11. ARANESP [Concomitant]
     Active Substance: DARBEPOETIN ALFA
     Indication: PRODUCT USED FOR UNKNOWN INDICATION
     Route: 065

REACTIONS (4)
  - Adrenal insufficiency [Recovering/Resolving]
  - Dyspnoea exertional [Unknown]
  - Renal failure [Recovering/Resolving]
  - Vomiting [Unknown]

NARRATIVE: CASE EVENT DATE: 20161007
